FAERS Safety Report 5040002-8 (Version None)
Quarter: 2006Q2

REPORT INFORMATION
  Report Type: 
  Country: None (occurrence: None)
  Receive Date: 20060630
  Receipt Date: 20060619
  Transmission Date: 20061013
  Serious: Yes (Hospitalization)
  Sender: FDA-Public Use
  Company Number: FR-BRISTOL-MYERS SQUIBB COMPANY-13424379

PATIENT
  Age: 28 Year
  Sex: Male

DRUGS (4)
  1. GLUCOPHAGE [Suspect]
     Indication: DIABETES MELLITUS
     Route: 048
  2. RIVOTRIL [Suspect]
     Indication: PSYCHOTIC DISORDER
     Route: 048
  3. TERCIAN [Suspect]
     Route: 048
     Dates: start: 20060509, end: 20060521
  4. RISPERDAL [Suspect]
     Route: 048
     Dates: start: 20060518, end: 20060522

REACTIONS (1)
  - URTICARIA GENERALISED [None]
